FAERS Safety Report 4358269-8 (Version None)
Quarter: 2004Q2

REPORT INFORMATION
  Report Type: 
  Country: None (occurrence: None)
  Receive Date: 20040514
  Receipt Date: 20040503
  Transmission Date: 20050107
  Serious: Yes (Hospitalization, Disabling)
  Sender: FDA-Public Use
  Company Number: US-BRISTOL-MYERS SQUIBB COMPANY-12576682

PATIENT
  Age: 39 Year
  Sex: Female

DRUGS (2)
  1. TRIAMCINOLONE [Suspect]
     Indication: INTERVERTEBRAL DISC DISPLACEMENT
     Dosage: DOSE RANGE: 60-80 MG
     Route: 008
  2. LIDOCAINE 1% [Suspect]
     Indication: INTERVERTEBRAL DISC DISPLACEMENT
     Route: 008

REACTIONS (5)
  - CENTRAL NERVOUS SYSTEM MASS [None]
  - HEADACHE [None]
  - INTRACRANIAL HYPOTENSION [None]
  - NECK PAIN [None]
  - NIGHT SWEATS [None]
